FAERS Safety Report 4325431-X (Version None)
Quarter: 2004Q1

REPORT INFORMATION
  Report Type: 
  Country: None (occurrence: None)
  Receive Date: 20040324
  Receipt Date: 20040309
  Transmission Date: 20041129
  Serious: Yes (Hospitalization)
  Sender: FDA-Public Use
  Company Number: US-JNJFOC-20040300433

PATIENT
  Age: 79 Year
  Sex: Female

DRUGS (14)
  1. DURAGESIC [Suspect]
     Indication: PAIN
     Dosage: 75 UG/HR, 1 IN 72 HOUR, TRANSDERMAL; 25 UG/HR, 1 IN 72 HOUR, TRANSDERMAL
     Route: 062
     Dates: start: 20040201, end: 20040225
  2. DURAGESIC [Suspect]
     Indication: PAIN
     Dosage: 75 UG/HR, 1 IN 72 HOUR, TRANSDERMAL; 25 UG/HR, 1 IN 72 HOUR, TRANSDERMAL
     Route: 062
     Dates: start: 20040301, end: 20040308
  3. RESTORIL [Suspect]
     Indication: DRUG USE FOR UNKNOWN INDICATION
     Dosage: 15 MG, 1 IN 1 AS NECESSARY, ORAL
     Route: 048
     Dates: start: 20020201, end: 20040225
  4. ZOCOR (TABLETS) SIMVASTATIN [Concomitant]
  5. ZOLOFT [Concomitant]
  6. POTASSIUM (POTASSIUM) [Concomitant]
  7. DIOXIN (DIGOXIN) TABLETS [Concomitant]
  8. ASPIRIN [Concomitant]
  9. METOPROLOL (METOPROLOL) TABLETS [Concomitant]
  10. LASIX [Concomitant]
  11. ZESTRIL [Concomitant]
  12. NIACIN [Concomitant]
  13. PRILOSEC [Concomitant]
  14. COUMADIN [Concomitant]

REACTIONS (6)
  - DIARRHOEA [None]
  - DIZZINESS [None]
  - DRUG INTERACTION [None]
  - MEMORY IMPAIRMENT [None]
  - NAUSEA [None]
  - VISUAL DISTURBANCE [None]
